FAERS Safety Report 24044564 (Version 3)
Quarter: 2024Q4

REPORT INFORMATION
  Report Type: Spontaneous
  Country: FR (occurrence: FR)
  Receive Date: 20240703
  Receipt Date: 20241204
  Transmission Date: 20250115
  Serious: Yes (Hospitalization, Other)
  Sender: BRISTOL-MYERS SQUIBB COMPANY
  Company Number: FR-BRISTOL-MYERS SQUIBB COMPANY-2024-105776

PATIENT
  Age: 58 Year
  Sex: Female
  Weight: 62 kg

DRUGS (1)
  1. OPDIVO [Suspect]
     Active Substance: NIVOLUMAB
     Indication: Non-small cell lung cancer stage IIIA
     Dosage: 3 CYCLES
     Route: 042
     Dates: start: 20240424, end: 20240515

REACTIONS (11)
  - Pain in extremity [Unknown]
  - Chills [Unknown]
  - Erythema [Unknown]
  - Inflammation [Recovering/Resolving]
  - Thrombocytopenia [Unknown]
  - Deep vein thrombosis [Recovered/Resolved]
  - Interstitial lung disease [Unknown]
  - Superficial vein thrombosis [Recovered/Resolved]
  - Subclavian vein thrombosis [Recovered/Resolved]
  - Venous thrombosis limb [Recovered/Resolved]
  - Device related thrombosis [Recovered/Resolved]

NARRATIVE: CASE EVENT DATE: 20240531
